FAERS Safety Report 7629943-2 (Version None)
Quarter: 2011Q3

REPORT INFORMATION
  Report Type: 
  Country: None (occurrence: None)
  Receive Date: 20110722
  Receipt Date: 20110712
  Transmission Date: 20111222
  Serious: Yes (Hospitalization, Other)
  Sender: FDA-Public Use
  Company Number: US-NAPPMUNDI-USA-2011-0071713

PATIENT
  Sex: Female

DRUGS (26)
  1. KALBITOR [Suspect]
     Dosage: 30 MG, SINGLE
     Route: 058
     Dates: start: 20110607, end: 20110607
  2. ALUMINIUM HYDROXI W/MAGNESIUM HYDROX/SIMETHIC [Concomitant]
     Indication: PRODUCT USED FOR UNKNOWN INDICATION
  3. ATARAX [Concomitant]
     Indication: PRODUCT USED FOR UNKNOWN INDICATION
  4. NASONEX [Concomitant]
     Indication: PRODUCT USED FOR UNKNOWN INDICATION
  5. PREVACID [Concomitant]
     Indication: PRODUCT USED FOR UNKNOWN INDICATION
  6. TOPAMAX [Concomitant]
     Indication: PRODUCT USED FOR UNKNOWN INDICATION
     Dosage: UNK
     Dates: start: 20110606
  7. VICODIN [Concomitant]
     Indication: PRODUCT USED FOR UNKNOWN INDICATION
  8. RANITIDINE [Concomitant]
     Indication: PRODUCT USED FOR UNKNOWN INDICATION
  9. SINGULAIR [Concomitant]
     Indication: PRODUCT USED FOR UNKNOWN INDICATION
  10. MAXALT                             /01406501/ [Concomitant]
     Indication: PRODUCT USED FOR UNKNOWN INDICATION
  11. ZYRTEC [Concomitant]
     Indication: PRODUCT USED FOR UNKNOWN INDICATION
  12. LIDODERM [Concomitant]
     Indication: PRODUCT USED FOR UNKNOWN INDICATION
  13. MAXAIR [Concomitant]
     Indication: PRODUCT USED FOR UNKNOWN INDICATION
  14. DILAUDID [Suspect]
     Indication: PAIN
     Dosage: UNK, SEE TEXT
     Dates: start: 20110606
  15. SENOKOT [Concomitant]
     Indication: PRODUCT USED FOR UNKNOWN INDICATION
     Dosage: UNK
     Dates: end: 20110607
  16. ZOFRAN [Suspect]
     Dosage: 4 MG, SINGLE
     Route: 042
     Dates: start: 20110607, end: 20110607
  17. ASTEPRO [Concomitant]
     Indication: PRODUCT USED FOR UNKNOWN INDICATION
  18. PROTONIX [Concomitant]
     Indication: PRODUCT USED FOR UNKNOWN INDICATION
     Dosage: UNK
     Dates: start: 20110607, end: 20110607
  19. ZOFRAN [Suspect]
     Indication: NAUSEA
     Dosage: 8 MG, SINGLE
     Route: 042
     Dates: start: 20110606, end: 20110606
  20. WELLBUTRIN [Concomitant]
     Indication: PRODUCT USED FOR UNKNOWN INDICATION
  21. FLOVENT [Concomitant]
     Indication: PRODUCT USED FOR UNKNOWN INDICATION
  22. RELPAX [Concomitant]
     Indication: PRODUCT USED FOR UNKNOWN INDICATION
     Dosage: UNK
     Dates: start: 20110606
  23. CINRYZE [Suspect]
     Indication: HEREDITARY ANGIOEDEMA
     Dosage: 1000 IU, SINGLE
     Route: 042
     Dates: start: 20110607, end: 20110607
  24. KALBITOR [Suspect]
     Indication: HEREDITARY ANGIOEDEMA
     Dosage: 30 MG, SINGLE
     Route: 058
     Dates: start: 20110606, end: 20110606
  25. PHENERGAN                          /00033001/ [Concomitant]
     Indication: PRODUCT USED FOR UNKNOWN INDICATION
     Dosage: UNK
     Dates: start: 20110607
  26. TYLENOL (CAPLET) [Concomitant]
     Indication: PRODUCT USED FOR UNKNOWN INDICATION
     Dosage: UNK
     Dates: end: 20110607

REACTIONS (8)
  - DYSURIA [None]
  - HEREDITARY ANGIOEDEMA [None]
  - VOMITING [None]
  - DEHYDRATION [None]
  - NAUSEA [None]
  - MIGRAINE [None]
  - DYSPNOEA [None]
  - ABDOMINAL DISTENSION [None]
